FAERS Safety Report 19263281 (Version 1)
Quarter: 2021Q2

REPORT INFORMATION
  Report Type: Spontaneous
  Country: TW (occurrence: TW)
  Receive Date: 20210517
  Receipt Date: 20210517
  Transmission Date: 20210717
  Serious: Yes (Other)
  Sender: FDA-Public Use
  Company Number: TW-LUPIN PHARMACEUTICALS INC.-2021-06837

PATIENT
  Age: 5 Year
  Sex: Female

DRUGS (4)
  1. CYCLOSPORIN [Concomitant]
     Active Substance: CYCLOSPORINE
     Dosage: THERAPY WAS CONTINUED AND THE DOSAGE WAS ADJUSTED BASED ON THE PATIENT^S BODY WEIGHT
     Route: 065
  2. PREDNISOLONE. [Concomitant]
     Active Substance: PREDNISOLONE
     Indication: NEPHROTIC SYNDROME
     Dosage: SYSTEMIC THERAPY
     Route: 065
  3. AMLODIPINE [Suspect]
     Active Substance: AMLODIPINE BESYLATE
     Indication: BLOOD PRESSURE MANAGEMENT
     Dosage: 0.5 MILLIGRAM, BID
     Route: 065
  4. CYCLOSPORIN [Concomitant]
     Active Substance: CYCLOSPORINE
     Indication: NEPHROTIC SYNDROME
     Dosage: 3 MILLIGRAM/KILOGRAM, QD
     Route: 065

REACTIONS (2)
  - Telangiectasia [Recovering/Resolving]
  - Melanosis [Recovering/Resolving]
